FAERS Safety Report 9345162 (Version 2)
Quarter: 2013Q3

REPORT INFORMATION
  Report Type: Spontaneous
  Country: US (occurrence: US)
  Receive Date: 20130612
  Receipt Date: 20130707
  Transmission Date: 20140515
  Serious: Yes (Other)
  Sender: FDA-Public Use
  Company Number: US-UCBSA-087759

PATIENT
  Age: 54 Year
  Sex: Female
  Weight: 56.7 kg

DRUGS (3)
  1. VIMPAT [Suspect]
     Indication: CONVULSION
     Dosage: 200MG TABLETS TWO DAILY
     Route: 048
     Dates: end: 20130621
  2. VIMPAT [Suspect]
     Indication: CONVULSION
  3. TEGRETOL [Concomitant]
     Indication: CONVULSION
     Dates: start: 198208

REACTIONS (3)
  - Convulsion [Recovered/Resolved]
  - Thermal burn [Recovering/Resolving]
  - Fall [Recovering/Resolving]
